FAERS Safety Report 23604770 (Version 1)
Quarter: 2024Q1

REPORT INFORMATION
  Report Type: Spontaneous
  Country: US (occurrence: US)
  Receive Date: 20240307
  Receipt Date: 20240307
  Transmission Date: 20240410
  Serious: Yes (Hospitalization)
  Sender: FDA-Public Use
  Company Number: US-IMMUNOGEN, INC.-US-IMGN-23-00764

PATIENT
  Age: 56 Year
  Sex: Female

DRUGS (3)
  1. ELAHERE [Suspect]
     Active Substance: MIRVETUXIMAB SORAVTANSINE-GYNX
     Indication: Ovarian cancer
     Dosage: 7 MILLIGRAM/KILOGRAM, UNK
     Route: 042
     Dates: start: 20231117
  2. ELIQUIS [Concomitant]
     Active Substance: APIXABAN
     Dosage: UNK, UNK
     Route: 065
  3. LISINOPRIL [Concomitant]
     Active Substance: LISINOPRIL
     Dosage: UNK, UNK
     Route: 065

REACTIONS (4)
  - Abdominal pain [Recovered/Resolved]
  - Abdominal distension [Recovered/Resolved]
  - White blood cell count increased [Recovered/Resolved]
  - Infection [Recovered/Resolved]

NARRATIVE: CASE EVENT DATE: 20231117
